FAERS Safety Report 23203007 (Version 4)
Quarter: 2024Q1

REPORT INFORMATION
  Report Type: Spontaneous
  Country: CA (occurrence: CA)
  Receive Date: 20231120
  Receipt Date: 20240221
  Transmission Date: 20240410
  Serious: Yes (Other)
  Sender: FDA-Public Use
  Company Number: CA-PFIZER INC-202300352223

PATIENT
  Age: 8 Year
  Sex: Male
  Weight: 29.5 kg

DRUGS (7)
  1. ABRILADA [Suspect]
     Active Substance: ADALIMUMAB-AFZB
     Indication: Crohn^s disease
     Dosage: 80 MG, WEEK 0: 80MG THEN 40MG EVERY 2 WEEKS
     Route: 058
     Dates: start: 20231109
  2. ABRILADA [Suspect]
     Active Substance: ADALIMUMAB-AFZB
     Dosage: 80 MG, WEEK 0: 80MG THEN 40MG EVERY 2 WEEKS
     Route: 058
     Dates: start: 20231110
  3. ABRILADA [Suspect]
     Active Substance: ADALIMUMAB-AFZB
     Dosage: 40MG EVERY 2 WEEKS
     Route: 058
     Dates: start: 20231123
  4. ABRILADA [Suspect]
     Active Substance: ADALIMUMAB-AFZB
     Dosage: 1 DF, WEEK 0: 80MG THEN 40MG EVERY 2 WEEKS -PREFILLED SYRINGE (40MG, 2 WEEKS)
     Route: 058
     Dates: start: 20231207
  5. ABRILADA [Suspect]
     Active Substance: ADALIMUMAB-AFZB
     Dosage: 1 DF, WEEK 0: 80MG THEN 40MG EVERY 2 WEEKS -PREFILLED SYRINGE (40MG, AFTER 2 WEEKS)
     Route: 058
     Dates: start: 20240215
  6. INDOMETHACIN [Concomitant]
     Active Substance: INDOMETHACIN
     Dosage: UNK
  7. PREVACID [Concomitant]
     Active Substance: LANSOPRAZOLE
     Dosage: UNK

REACTIONS (6)
  - Neurogenic shock [Recovered/Resolved]
  - Loss of consciousness [Recovered/Resolved]
  - Injection site pain [Recovered/Resolved]
  - Musculoskeletal stiffness [Recovered/Resolved]
  - Pallor [Recovered/Resolved]
  - Off label use [Unknown]

NARRATIVE: CASE EVENT DATE: 20231109
